FAERS Safety Report 4746303-2 (Version None)
Quarter: 2005Q3

REPORT INFORMATION
  Report Type: 
  Country: None (occurrence: None)
  Receive Date: 20050816
  Receipt Date: 20050816
  Transmission Date: 20060218
  Serious: Yes (Other)
  Sender: FDA-Public Use
  Company Number: None

PATIENT
  Age: 61 Year
  Sex: Female

DRUGS (6)
  1. ASPIRIN TABLETS,  ITEM A-400     325 MG USP   FIRST AID ONLY [Suspect]
     Indication: INFLAMMATION
     Dosage: 2      2,4,24HR  ORAL
     Route: 048
     Dates: start: 20050813, end: 20050815
  2. SYNTHROID [Concomitant]
  3. NEXIUM [Concomitant]
  4. ASPIRIN [Concomitant]
  5. CLARITIN [Concomitant]
  6. DAPSONE [Concomitant]

REACTIONS (2)
  - INSOMNIA [None]
  - PHARMACEUTICAL PRODUCT COMPLAINT [None]
